FAERS Safety Report 7006156-9 (Version None)
Quarter: 2010Q3

REPORT INFORMATION
  Report Type: 
  Country: None (occurrence: None)
  Receive Date: 20100921
  Receipt Date: 20100909
  Transmission Date: 20110219
  Serious: Yes (Other)
  Sender: FDA-Public Use
  Company Number: US-PFIZER INC-2010114746

PATIENT
  Sex: Male
  Weight: 122.45 kg

DRUGS (5)
  1. ZYVOX [Suspect]
     Indication: STAPHYLOCOCCAL INFECTION
     Dosage: UNK
     Route: 042
     Dates: start: 20100601, end: 20100101
  2. ZYVOX [Suspect]
     Dosage: 600 MG, 2X/DAY
     Route: 048
  3. TIKOSYN [Concomitant]
  4. COREG [Concomitant]
  5. PROZAC [Concomitant]

REACTIONS (3)
  - FOOT FRACTURE [None]
  - STAPHYLOCOCCAL INFECTION [None]
  - TOE AMPUTATION [None]
